FAERS Safety Report 18578354 (Version 1)
Quarter: 2020Q4

REPORT INFORMATION
  Report Type: Spontaneous
  Country: US (occurrence: US)
  Receive Date: 20201202
  Receipt Date: 20201202
  Transmission Date: 20210114
  Serious: Yes (Hospitalization)
  Sender: FDA-Public Use
  Company Number: None

PATIENT
  Age: 70 Year
  Sex: Male
  Weight: 100 kg

DRUGS (1)
  1. IBRUTINIB (IBRUTINIB 140MG CAP, ORAL) [Suspect]
     Active Substance: IBRUTINIB
     Indication: ATRIAL FIBRILLATION
     Route: 048

REACTIONS (2)
  - Palpitations [None]
  - Atrial fibrillation [None]
